FAERS Safety Report 5167075-6 (Version None)
Quarter: 2006Q4

REPORT INFORMATION
  Report Type: 
  Country: None (occurrence: None)
  Receive Date: 20061207
  Receipt Date: 20061018
  Transmission Date: 20070319
  Serious: Yes (Other)
  Sender: FDA-Public Use
  Company Number: 2006UW20137

PATIENT
  Age: 65 Year
  Sex: Female
  Weight: 93.6 kg

DRUGS (9)
  1. ARIMIDEX [Suspect]
     Indication: BREAST CANCER FEMALE
     Route: 048
     Dates: start: 20050926, end: 20060920
  2. FOSAMAX [Concomitant]
     Route: 048
     Dates: start: 20060524
  3. CALCIUM [Concomitant]
     Route: 048
     Dates: start: 20060524
  4. VITAMIN B-12 [Concomitant]
     Route: 048
     Dates: start: 20060524
  5. LORAZEPAM [Concomitant]
     Route: 048
     Dates: start: 20060524
  6. FOLIC ACID [Concomitant]
     Route: 048
     Dates: start: 20050908
  7. VITAMIN CAP [Concomitant]
     Route: 048
     Dates: start: 20050901
  8. PREDNISONE TAB [Concomitant]
     Dosage: 5 TABS QD X 4 DAYS, 4X4 DAYS, 3X4 DAYS, 2X4 DAYS, THEN 1X4
     Route: 048
     Dates: start: 20060524, end: 20060717
  9. VITAMIN D [Concomitant]
     Route: 048

REACTIONS (3)
  - INTERVERTEBRAL DISC PROTRUSION [None]
  - OSTEOPENIA [None]
  - OSTEOPOROSIS [None]
